FAERS Safety Report 9008098 (Version 1)
Quarter: 2013Q1

REPORT INFORMATION
  Report Type: Spontaneous
  Country: US (occurrence: US)
  Receive Date: 20130111
  Receipt Date: 20130111
  Transmission Date: 20140127
  Serious: No
  Sender: FDA-Public Use
  Company Number: US-MYLANLABS-2012S1020119

PATIENT
  Age: 78 Year
  Sex: Female

DRUGS (3)
  1. METOPROLOL SUCCINATE EXTENDED-RELEAS E [Suspect]
     Indication: BLOOD PRESSURE INCREASED
     Route: 048
     Dates: start: 201208
  2. LISINOPRIL [Concomitant]
     Indication: BLOOD PRESSURE INCREASED
  3. PROBIOTICS [Concomitant]
     Indication: IRRITABLE BOWEL SYNDROME

REACTIONS (1)
  - Diarrhoea [Not Recovered/Not Resolved]
